FAERS Safety Report 5277513-6 (Version None)
Quarter: 2007Q1

REPORT INFORMATION
  Report Type: 
  Country: None (occurrence: None)
  Receive Date: 20070327
  Receipt Date: 20070305
  Transmission Date: 20070707
  Serious: Yes (Hospitalization)
  Sender: FDA-Public Use
  Company Number: NO-ROCHE-484567

PATIENT
  Age: 27 Year
  Sex: Male
  Weight: 100 kg

DRUGS (31)
  1. VALIUM [Suspect]
     Indication: DRUG USE FOR UNKNOWN INDICATION
     Dosage: TAKEN AT THE SAME TIME AS ALPRAZOLAM IN 1999. EXACT START DATE UKNOWN.
     Route: 065
  2. VALIUM [Suspect]
     Dosage: OVERDOSE, ASSESSED AS A CRY FOR HELP.
     Route: 065
     Dates: start: 20021230
  3. ROHYPNOL [Suspect]
     Indication: DRUG USE FOR UNKNOWN INDICATION
     Dosage: TAKEN AT THE SAME TIME AS ALPRAZOLAM.
     Route: 065
  4. XANOR [Suspect]
     Dosage: THE PATIENT WAS PRESCRIBED ALPRAZOLAM 04 JUNE 1999. FIRST DOCUMENTATION THAT HE ACTUALLY USED IT IN+
     Route: 065
     Dates: start: 19990915
  5. XANOR [Suspect]
     Dosage: AT THE TIME OF DRUG LEVEL MEASUREMENT IN DECEMBER 1999. DOSE REDUCTION WAS RECOMMENDED.
     Route: 065
     Dates: start: 19991215
  6. XANOR [Suspect]
     Dosage: OVERDOSE.
     Route: 065
     Dates: start: 20010615
  7. XANOR [Suspect]
     Dosage: 14 MG DAILY AT THE TIME OF OVERDOSE IN 2001.
     Route: 065
     Dates: start: 20010615
  8. XANOR [Suspect]
     Dosage: OVERDOSE DUE TO FRUSTRATION AFTER HE WAS FOUND QUITLY OF RAPE.
     Route: 065
     Dates: start: 20021215
  9. XANOR [Suspect]
     Dosage: 16 MG DAILY AT THE TIME OF OVERDOSE IN DECEMBER 2002.
     Route: 065
     Dates: start: 20021215, end: 20040310
  10. XANOR [Suspect]
     Dosage: OVERDOSE, ASSESSED AS A CRY FOR HELP.
     Route: 065
     Dates: start: 20021230
  11. XANOR [Suspect]
     Dosage: OVERDOSE.
     Route: 065
     Dates: start: 20030915
  12. XANOR [Suspect]
     Route: 065
  13. IMOVANE [Suspect]
     Indication: DRUG USE FOR UNKNOWN INDICATION
     Dosage: TAKEN CONCOMITANTLY WITH ALPRAZOLAM IN 1999. EXACT THERAPY DATES UNKNOWN.
     Route: 065
  14. IMOVANE [Suspect]
     Dosage: OVERDOSE ON 30 DEC 2002. ASSESSED AS A CRY FOR HELP.
     Route: 065
     Dates: start: 20021230
  15. IMOVANE [Suspect]
     Dosage: OVERDOSE DUE TO FRUSTRATION AFTER HE WAS FOUND GUILTY OF RAPE.
     Route: 065
     Dates: start: 20021215
  16. SOBRIL [Suspect]
     Indication: DRUG USE FOR UNKNOWN INDICATION
     Dosage: USED DURING FIRST REFERRAL TO A PSYCHIATRIC POLICLINIC IN JUNE 1995 TOGETHER WITH PAROXETINE (SEROX+
     Route: 065
     Dates: start: 19950615, end: 19950615
  17. SOBRIL [Suspect]
     Dosage: USED AT THE SAME TIME AS ALPRAZOLAM.
     Route: 065
  18. ACETAMINOPHEN AND CODEINE PHOSPHATE [Suspect]
     Indication: DRUG USE FOR UNKNOWN INDICATION
     Dosage: USED AT THE SAME TIME AS ALPRAZOLAM.
     Route: 065
  19. PARALGIN FORTE [Suspect]
     Indication: DRUG USE FOR UNKNOWN INDICATION
     Dosage: USED AT THE SAME TIME AS ALPRAZOLAM.
     Route: 065
  20. PAROXETINE HCL [Suspect]
     Indication: DRUG USE FOR UNKNOWN INDICATION
     Dosage: USING TOGETHER WITH OXAZEPAM (SOBRIL) DURING FIRST REFERRAL TO PSYCHIATRIC POLICLINIC IN JUNE 1995.
     Route: 065
     Dates: start: 19950615
  21. PAROXETINE HCL [Suspect]
     Route: 065
     Dates: start: 19970615
  22. PAROXETINE HCL [Suspect]
     Dosage: OVERDOSE, SINCE HE WAS FRUSTRATED AFTER HE WAS FOUND GUILTY OF RAPE.
     Route: 065
     Dates: start: 20021215
  23. PAROXETINE HCL [Suspect]
     Dosage: 40 MG DAILY AT THE TIME OF OVERDOSE WITH ZOPICLONE AND ALPRAZOLAM IN DECEMBER 2002.
     Route: 065
     Dates: start: 20021215
  24. ANABOLIC STEROIDS [Suspect]
     Indication: DRUG USE FOR UNKNOWN INDICATION
     Dosage: USED IN PERIODS PRIOR TO 1997.
     Route: 065
     Dates: end: 19970615
  25. ALCOHOL [Suspect]
     Indication: DRUG USE FOR UNKNOWN INDICATION
     Dosage: TAKEN AS OVERDOSE, ASSESSED AS A CRY FOR HELP.
     Route: 065
     Dates: start: 20021230
  26. ALCOHOL [Suspect]
     Route: 065
     Dates: start: 19950615
  27. STESOLID [Suspect]
     Indication: DRUG USE FOR UNKNOWN INDICATION
     Dosage: USED IN ADDITION TO ALPRAZOLAM.
     Route: 065
  28. VIVAL [Suspect]
     Indication: DRUG USE FOR UNKNOWN INDICATION
     Dosage: USED IN ADDITION TO ALPRAZOLAM.
     Route: 065
  29. ZOLPIDEM TARTRATE [Suspect]
     Indication: DRUG USE FOR UNKNOWN INDICATION
     Dosage: USED IN ADDITION TO ALPRAZOLAM.
     Route: 065
  30. SOLVIPECT COMP [Suspect]
     Indication: DRUG USE FOR UNKNOWN INDICATION
     Dosage: USED IN ADDITION TO ALPRAZOLAM.
     Route: 065
  31. UNSPECIFIED DRUGS [Suspect]
     Indication: DRUG USE FOR UNKNOWN INDICATION
     Dosage: REPORTED AS MORE (NOT FURTHER SPECIFIED).USED AT THE SAME TIME AS ALPRAZOLAM.
     Route: 065

REACTIONS (15)
  - AGGRESSION [None]
  - BIPOLAR DISORDER [None]
  - BLOOD CHOLESTEROL INCREASED [None]
  - DEPRESSION [None]
  - DRUG DEPENDENCE [None]
  - HYPERTENSION [None]
  - HYPOMANIA [None]
  - INSOMNIA [None]
  - INTENTIONAL OVERDOSE [None]
  - MENTAL DISORDER [None]
  - PERSONALITY CHANGE [None]
  - PSYCHOTIC DISORDER [None]
  - SEXUAL ABUSE [None]
  - SUICIDAL IDEATION [None]
  - WEIGHT INCREASED [None]
